FAERS Safety Report 4349342-9 (Version None)
Quarter: 2004Q2

REPORT INFORMATION
  Report Type: 
  Country: None (occurrence: None)
  Receive Date: 20040426
  Receipt Date: 20040409
  Transmission Date: 20050107
  Serious: Yes (Death, Hospitalization)
  Sender: FDA-Public Use
  Company Number: 7851

PATIENT
  Age: 74 Year
  Sex: Female

DRUGS (9)
  1. METHOTREXATE [Suspect]
     Dosage: 5 MG WEEKLY PO
     Route: 048
     Dates: start: 20011128, end: 20020506
  2. ENBREL [Suspect]
     Indication: RHEUMATOID ARTHRITIS
     Dosage: 25 MG 2/WK SC
     Route: 058
     Dates: start: 20021030, end: 20031130
  3. FOLIC ACID [Concomitant]
  4. PREDNISONE [Concomitant]
  5. THYROID TAB [Concomitant]
  6. EVISTA [Concomitant]
  7. PREMARIN [Concomitant]
  8. LIPITOR [Concomitant]
  9. PREVACID [Concomitant]

REACTIONS (19)
  - ANAEMIA [None]
  - ATRIOVENTRICULAR BLOCK FIRST DEGREE [None]
  - BRADYCARDIA [None]
  - CARDIAC FAILURE CONGESTIVE [None]
  - CARDIO-RESPIRATORY ARREST [None]
  - DISSEMINATED INTRAVASCULAR COAGULATION [None]
  - HYPOTHYROIDISM [None]
  - LOSS OF CONSCIOUSNESS [None]
  - METABOLIC ACIDOSIS [None]
  - MYOCARDIAL INFARCTION [None]
  - PNEUMONIA [None]
  - PULMONARY OEDEMA [None]
  - RENAL FAILURE ACUTE [None]
  - RESPIRATORY ACIDOSIS [None]
  - RESPIRATORY FAILURE [None]
  - SEPSIS [None]
  - SHOCK [None]
  - SINUS TACHYCARDIA [None]
  - UNRESPONSIVE TO PAIN STIMULI [None]
